FAERS Safety Report 10058706 (Version 1)
Quarter: 2014Q2

REPORT INFORMATION
  Report Type: Spontaneous
  Country: TR (occurrence: None)
  Receive Date: 20140402
  Receipt Date: 20140402
  Transmission Date: 20141212
  Serious: Yes (Other)
  Sender: FDA-Public Use
  Company Number: FK201401018

PATIENT
  Sex: Male

DRUGS (1)
  1. VALPROATE (MANUFACTURER UNKNOWN) (VALPROATE SODIUM0 (VALPROATE SODIUM) [Suspect]
     Indication: EPILEPSY

REACTIONS (4)
  - Gingival hyperplasia [None]
  - Lymphadenitis [None]
  - Gingival pain [None]
  - Pain in jaw [None]
